FAERS Safety Report 20846541 (Version 1)
Quarter: 2022Q2

REPORT INFORMATION
  Report Type: Spontaneous
  Country: US (occurrence: US)
  Receive Date: 20220518
  Receipt Date: 20220518
  Transmission Date: 20220721
  Serious: No
  Sender: FDA-Public Use
  Company Number: US-JNJFOC-20220529145

PATIENT
  Age: 79 Year
  Sex: Male
  Weight: 81.720 kg

DRUGS (2)
  1. XARELTO [Suspect]
     Active Substance: RIVAROXABAN
     Indication: Atrial fibrillation
     Route: 048
  2. XARELTO [Suspect]
     Active Substance: RIVAROXABAN
     Indication: Cerebrovascular accident prophylaxis

REACTIONS (10)
  - Back pain [Unknown]
  - Panic reaction [Unknown]
  - Gait disturbance [Unknown]
  - Initial insomnia [Unknown]
  - Pain [Unknown]
  - Abdominal pain [Unknown]
  - Fatigue [Unknown]
  - Muscle spasms [Unknown]
  - Dizziness [Unknown]
  - Anxiety [Unknown]
